FAERS Safety Report 8122468-X (Version None)
Quarter: 2012Q1

REPORT INFORMATION
  Report Type: 
  Country: None (occurrence: None)
  Receive Date: 20120208
  Receipt Date: 20111129
  Transmission Date: 20120608
  Serious: No
  Sender: FDA-Public Use
  Company Number: US-ASTRAZENECA-2011SE72505

PATIENT
  Sex: Female

DRUGS (1)
  1. ACCOLATE [Suspect]
     Indication: ASTHMA
     Route: 048
     Dates: start: 20111103

REACTIONS (7)
  - OROPHARYNGEAL PAIN [None]
  - BRONCHITIS [None]
  - NASOPHARYNGITIS [None]
  - NAUSEA [None]
  - DYSPEPSIA [None]
  - ANXIETY [None]
  - DYSPHONIA [None]
